FAERS Safety Report 4429136-6 (Version None)
Quarter: 2004Q3

REPORT INFORMATION
  Report Type: 
  Country: None (occurrence: None)
  Receive Date: 20040726
  Receipt Date: 20040419
  Transmission Date: 20050211
  Serious: No
  Sender: FDA-Public Use
  Company Number: USA040361599

PATIENT
  Age: 70 Year
  Sex: Female
  Weight: 72 kg

DRUGS (11)
  1. FORTEO [Suspect]
     Indication: OSTEOPOROSIS
     Dosage: 20 UG DAY
     Dates: start: 20040227, end: 20040306
  2. EVISTA [Concomitant]
  3. PRILOSEC [Concomitant]
  4. ACETONEL (RISEDRONATE) [Concomitant]
  5. CELEBREX [Concomitant]
  6. PRAVCAHOL (PRAVASTATIN SODIUM) [Concomitant]
  7. HYDROCIL INSTANT (PSYLLIUM HYDROPHILIC MUCILLPIOD) [Concomitant]
  8. PATANOL [Concomitant]
  9. CALCIUM [Concomitant]
  10. ASPIRN [Concomitant]
  11. GLUCOSAMINE [Concomitant]

REACTIONS (3)
  - INJECTION SITE ERYTHEMA [None]
  - INJECTION SITE REACTION [None]
  - URTICARIA [None]
